FAERS Safety Report 4942755-3 (Version None)
Quarter: 2006Q1

REPORT INFORMATION
  Report Type: 
  Country: None (occurrence: None)
  Receive Date: 20060222
  Receipt Date: 20060213
  Transmission Date: 20060701
  Serious: Yes (Hospitalization)
  Sender: FDA-Public Use
  Company Number: 2005BH003162

PATIENT
  Age: 31 Year
  Sex: Male
  Weight: 64 kg

DRUGS (5)
  1. PROPLEX T [Suspect]
     Indication: HAEMARTHROSIS
     Dosage: 4800 UNITS; 2X A DAY; IV
     Route: 042
     Dates: start: 19930804, end: 20031101
  2. NAUZELIN [Concomitant]
  3. MIYA-BM [Concomitant]
  4. LOPEMIN [Concomitant]
  5. BRUFEN [Concomitant]

REACTIONS (4)
  - DISEASE PROGRESSION [None]
  - HAEMARTHROSIS [None]
  - NEPHROTIC SYNDROME [None]
  - RENAL FAILURE [None]
